FAERS Safety Report 14501011 (Version 1)
Quarter: 2018Q1

REPORT INFORMATION
  Report Type: Spontaneous
  Country: US (occurrence: US)
  Receive Date: 20180207
  Receipt Date: 20180207
  Transmission Date: 20180509
  Serious: No
  Sender: FDA-Public Use
  Company Number: US-AMGEN-USASP2017137620

PATIENT
  Age: 64 Year
  Sex: Female

DRUGS (2)
  1. NEULASTA [Suspect]
     Active Substance: PEGFILGRASTIM
     Indication: PRODUCT USED FOR UNKNOWN INDICATION
     Dosage: UNK
     Route: 065
     Dates: start: 201708
  2. NEULASTA [Suspect]
     Active Substance: PEGFILGRASTIM
     Dosage: UNK
     Route: 065
     Dates: start: 201709

REACTIONS (6)
  - Body temperature abnormal [Unknown]
  - Flatulence [Unknown]
  - White blood cell count abnormal [Unknown]
  - Flushing [Unknown]
  - Retching [Unknown]
  - Swelling [Unknown]

NARRATIVE: CASE EVENT DATE: 201708
